FAERS Safety Report 15407877 (Version 1)
Quarter: 2018Q3

REPORT INFORMATION
  Report Type: Spontaneous
  Country: IT (occurrence: IT)
  Receive Date: 20180920
  Receipt Date: 20180920
  Transmission Date: 20181010
  Serious: Yes (Death, Other)
  Sender: FDA-Public Use
  Company Number: IT-JNJFOC-20180906675

PATIENT
  Age: 56 Year
  Sex: Female

DRUGS (5)
  1. RANITIDINE HYDROCHLORIDE. [Concomitant]
     Active Substance: RANITIDINE HYDROCHLORIDE
     Route: 065
  2. MATRIFEN [Concomitant]
     Active Substance: FENTANYL
     Route: 062
  3. DEXAMETHASONE. [Concomitant]
     Active Substance: DEXAMETHASONE
     Route: 065
  4. CAELYX [Suspect]
     Active Substance: DOXORUBICIN HYDROCHLORIDE
     Indication: BREAST CANCER
     Route: 042
     Dates: start: 20180803, end: 20180803
  5. ONDANSETRON HYDROCHLORIDE. [Concomitant]
     Active Substance: ONDANSETRON HYDROCHLORIDE
     Route: 042

REACTIONS (2)
  - Respiratory alkalosis [Fatal]
  - Dyspnoea [Fatal]

NARRATIVE: CASE EVENT DATE: 20180805
